FAERS Safety Report 15397139 (Version 1)
Quarter: 2018Q3

REPORT INFORMATION
  Report Type: Spontaneous
  Country: US (occurrence: US)
  Receive Date: 20180913
  Receipt Date: 20180913
  Transmission Date: 20181010
  Serious: Yes (Death)
  Sender: FDA-Public Use
  Company Number: None

PATIENT
  Age: 62 Year
  Sex: Female
  Weight: 55 kg

DRUGS (15)
  1. AMITRIPTYLINE [Concomitant]
     Active Substance: AMITRIPTYLINE
  2. ASPIRIN. [Concomitant]
     Active Substance: ASPIRIN
  3. FLUCONAZOLE. [Concomitant]
     Active Substance: FLUCONAZOLE
  4. CARVEDILOL. [Concomitant]
     Active Substance: CARVEDILOL
  5. ONDANSETRON [Concomitant]
     Active Substance: ONDANSETRON
  6. FLUOXETINE [Concomitant]
     Active Substance: FLUOXETINE HYDROCHLORIDE
  7. ATORVASTATIN [Concomitant]
     Active Substance: ATORVASTATIN
  8. HARVONI [Suspect]
     Active Substance: LEDIPASVIR\SOFOSBUVIR
     Indication: CHRONIC HEPATITIS C
     Route: 048
     Dates: start: 20180823, end: 20180906
  9. FLONASE [Concomitant]
     Active Substance: FLUTICASONE PROPIONATE
  10. AUGMENTIN SUSPENSION [Concomitant]
  11. ROBITUSSIN (GUAIFENESIN) [Concomitant]
     Active Substance: GUAIFENESIN
  12. ACETAMINOPHEN?HYDROCODONE [Concomitant]
     Active Substance: ACETAMINOPHEN\HYDROCODONE
  13. CALCIUM CARBONATE. [Concomitant]
     Active Substance: CALCIUM CARBONATE
  14. XYZAL [Concomitant]
     Active Substance: LEVOCETIRIZINE DIHYDROCHLORIDE
  15. LISINOPRIL. [Concomitant]
     Active Substance: LISINOPRIL

REACTIONS (4)
  - Haemoptysis [None]
  - Laryngeal squamous cell carcinoma [None]
  - Cardiac arrest [None]
  - Pneumonia aspiration [None]

NARRATIVE: CASE EVENT DATE: 20180906
